FAERS Safety Report 10312715 (Version 1)
Quarter: 2014Q3

REPORT INFORMATION
  Report Type: Spontaneous
  Country: US (occurrence: None)
  Receive Date: 20140717
  Receipt Date: 20140717
  Transmission Date: 20150326
  Serious: Yes (Disabling)
  Sender: FDA-Public Use
  Company Number: None

PATIENT
  Age: 76 Year
  Sex: Female
  Weight: 115.67 kg

DRUGS (12)
  1. B6 [Concomitant]
     Active Substance: PYRIDOXINE HYDROCHLORIDE
  2. LUTEIN [Concomitant]
     Active Substance: LUTEIN
  3. VITAMIN D [Concomitant]
     Active Substance: CHOLECALCIFEROL
  4. MULTIVITAMIN [Concomitant]
     Active Substance: VITAMINS
  5. BABY ASA [Concomitant]
     Active Substance: ASPIRIN
  6. POTASSIUM [Concomitant]
     Active Substance: POTASSIUM
  7. COQ10 WITH CINAMON [Concomitant]
  8. BUPROPION [Suspect]
     Active Substance: BUPROPION
     Indication: DEPRESSION
     Dosage: BY MOUTH
     Route: 048
     Dates: start: 20140604, end: 20140716
  9. ATENOLOL. [Concomitant]
     Active Substance: ATENOLOL
  10. PREDNISONE. [Concomitant]
     Active Substance: PREDNISONE
  11. FISH OIL [Concomitant]
     Active Substance: FISH OIL
  12. HCTZ [Concomitant]
     Active Substance: HYDROCHLOROTHIAZIDE

REACTIONS (1)
  - Dyspnoea [None]

NARRATIVE: CASE EVENT DATE: 20130616
